FAERS Safety Report 7350880-5 (Version None)
Quarter: 2011Q1

REPORT INFORMATION
  Report Type: 
  Country: None (occurrence: None)
  Receive Date: 20110314
  Receipt Date: 20110310
  Transmission Date: 20110831
  Serious: No
  Sender: FDA-Public Use
  Company Number: US-PFIZER INC-2011054080

PATIENT

DRUGS (1)
  1. CHANTIX [Suspect]

REACTIONS (1)
  - ABNORMAL DREAMS [None]
